FAERS Safety Report 8970689 (Version 1)
Quarter: 2012Q4

REPORT INFORMATION
  Report Type: 
  Country: US (occurrence: US)
  Receive Date: 20121218
  Receipt Date: 20121218
  Transmission Date: 20130627
  Serious: No
  Sender: FDA-Public Use
  Company Number: US-BRISTOL-MYERS SQUIBB COMPANY-16509267

PATIENT
  Age: 47 Year
  Sex: Female

DRUGS (2)
  1. ABILIFY [Suspect]
     Indication: POST-TRAUMATIC STRESS DISORDER
     Dosage: received from 2003-2006; restarted on 13Mar2012 at a dose of 15 mg
     Dates: start: 2003
  2. TYLENOL [Suspect]

REACTIONS (14)
  - Nervousness [Unknown]
  - Fatigue [Unknown]
  - Somnolence [Unknown]
  - Weight increased [Unknown]
  - Hyperphagia [Unknown]
  - Thirst [Unknown]
  - Drooling [Unknown]
  - Chest pain [Unknown]
  - Dyspnoea [Unknown]
  - Visual impairment [Unknown]
  - Panic attack [Unknown]
  - Arthralgia [Unknown]
  - Insomnia [Unknown]
  - Feeling abnormal [Unknown]
